FAERS Safety Report 5471250-0 (Version None)
Quarter: 2007Q3

REPORT INFORMATION
  Report Type: 
  Country: None (occurrence: None)
  Receive Date: 20070928
  Receipt Date: 20070924
  Transmission Date: 20080115
  Serious: Yes (Death, Hospitalization, Other)
  Sender: FDA-Public Use
  Company Number: GR-ABBOTT-07P-066-0366873-00

PATIENT
  Age: 62 Year
  Sex: Female
  Weight: 62.5 kg

DRUGS (8)
  1. ZEMPLAR [Suspect]
     Indication: HYPERPARATHYROIDISM SECONDARY
     Route: 042
     Dates: start: 20070314, end: 20070901
  2. ZEMPLAR [Suspect]
     Route: 042
     Dates: start: 20070901, end: 20070923
  3. EPOETIN BETA [Concomitant]
     Indication: ANAEMIA
     Route: 042
     Dates: start: 20030421
  4. INTELLECTA [Concomitant]
     Indication: CARNITINE DECREASED
     Route: 042
     Dates: start: 20030801
  5. CERNEVIT-12 [Concomitant]
     Indication: VITAMIN SUPPLEMENTATION
     Route: 042
     Dates: start: 20050101
  6. BUFLOMEDIL HYDROCHLORIDE [Concomitant]
     Indication: PERIPHERAL VASCULAR DISORDER
     Route: 048
     Dates: start: 20070101, end: 20070923
  7. ASPIRIN [Concomitant]
     Indication: CORONARY ARTERY DISEASE
     Route: 048
     Dates: start: 20000101
  8. FORSENOL [Concomitant]
     Indication: HYPERPHOSPHATAEMIA
     Route: 048
     Dates: start: 20070314

REACTIONS (4)
  - FEMORAL ARTERY OCCLUSION [None]
  - GANGRENE [None]
  - PNEUMONIA [None]
  - SEPSIS [None]
